FAERS Safety Report 7682265-6 (Version None)
Quarter: 2011Q3

REPORT INFORMATION
  Report Type: 
  Country: None (occurrence: None)
  Receive Date: 20110815
  Receipt Date: 20110809
  Transmission Date: 20111222
  Serious: Yes (Hospitalization, Other)
  Sender: FDA-Public Use
  Company Number: JP-AMGEN-JPNCT2011039435

PATIENT
  Age: 75 Year
  Sex: Female
  Weight: 48 kg

DRUGS (5)
  1. PANITUMUMAB [Suspect]
     Dosage: 230 MG, Q3WK
     Route: 041
     Dates: start: 20110531
  2. PANITUMUMAB [Suspect]
     Indication: COLORECTAL CANCER
     Dosage: 290 MG, Q3WK
     Route: 041
     Dates: start: 20110419, end: 20110510
  3. FLUOROURACIL [Suspect]
     Indication: COLORECTAL CANCER
     Route: 041
     Dates: start: 20110419, end: 20110512
  4. LEUCOVORIN CALCIUM [Concomitant]
     Indication: COLORECTAL CANCER
     Route: 041
     Dates: start: 20110419, end: 20110510
  5. CAMPTOSAR [Concomitant]
     Indication: COLORECTAL CANCER
     Route: 041
     Dates: start: 20110419, end: 20110510

REACTIONS (5)
  - TONGUE PIGMENTATION [None]
  - COMPRESSION FRACTURE [None]
  - ACNE [None]
  - STOMATITIS [None]
  - SKIN EROSION [None]
